FAERS Safety Report 9103679 (Version 4)
Quarter: 2013Q4

REPORT INFORMATION
  Report Type: Spontaneous
  Country: US (occurrence: US)
  Receive Date: 20130219
  Receipt Date: 20131231
  Transmission Date: 20140711
  Serious: Yes (Hospitalization, Other)
  Sender: FDA-Public Use
  Company Number: US-009507513-1302USA008074

PATIENT
  Sex: Female
  Weight: 49.89 kg

DRUGS (5)
  1. FOSAMAX [Suspect]
     Indication: OSTEOPOROSIS
     Dosage: 70 MG, QW
     Route: 048
     Dates: start: 20040922, end: 20110507
  2. FOSAMAX [Suspect]
     Indication: BONE LOSS
  3. ALENDRONATE SODIUM [Suspect]
     Dosage: 70 MG, QW
  4. HORMONES (UNSPECIFIED) [Concomitant]
     Dosage: UNK
     Dates: start: 1977
  5. CALTRATE (CALCIUM CARBONATE) [Concomitant]
     Indication: BONE LOSS

REACTIONS (18)
  - Spinal column stenosis [Unknown]
  - Osteonecrosis of jaw [Unknown]
  - Wrist fracture [Unknown]
  - Ankle fracture [Unknown]
  - Depression [Unknown]
  - Pain [Unknown]
  - Dental caries [Unknown]
  - Abscess [Unknown]
  - Tooth loss [Unknown]
  - Loose tooth [Unknown]
  - Gingival disorder [Unknown]
  - Oral surgery [Unknown]
  - Tooth loss [Unknown]
  - Heart valve incompetence [Unknown]
  - Arthritis [Unknown]
  - Hypertension [Unknown]
  - Blood cholesterol increased [Unknown]
  - Back pain [Unknown]
